FAERS Safety Report 7324902-1 (Version None)
Quarter: 2011Q1

REPORT INFORMATION
  Report Type: 
  Country: None (occurrence: None)
  Receive Date: 20110301
  Receipt Date: 20110223
  Transmission Date: 20110831
  Serious: Yes (Other)
  Sender: FDA-Public Use
  Company Number: US-ABBOTT-11P-163-0707282-00

PATIENT
  Sex: Female
  Weight: 108.96 kg

DRUGS (11)
  1. HUMIRA [Suspect]
     Indication: PSORIASIS
     Dates: start: 20091001, end: 20101001
  2. LEVOTHYROXINE [Concomitant]
     Indication: HYPOTHYROIDISM
  3. BECTECAL [Concomitant]
     Indication: PSORIASIS
  4. HUMIRA [Suspect]
     Indication: RHEUMATOID ARTHRITIS
     Dates: start: 20110219
  5. VENLAFAXINE [Concomitant]
     Indication: DEPRESSION
  6. ALLEGRA [Concomitant]
     Indication: HYPERSENSITIVITY
  7. CLOBETAZOLE [Concomitant]
     Indication: PSORIASIS
  8. DIOVAN [Concomitant]
     Indication: HYPERTENSION
  9. HYDROCHLOROTHIAZIDE [Concomitant]
     Indication: HYPERTENSION
  10. DOVONEX [Concomitant]
     Indication: PSORIASIS
  11. IBUPROFEN [Concomitant]
     Indication: PAIN

REACTIONS (6)
  - SCAR [None]
  - LUNG NEOPLASM [None]
  - PYREXIA [None]
  - HEPATIC ENZYME INCREASED [None]
  - HISTOPLASMOSIS [None]
  - CHILLS [None]
